FAERS Safety Report 14925796 (Version 1)
Quarter: 2018Q2

REPORT INFORMATION
  Report Type: Spontaneous
  Country: DE (occurrence: DE)
  Receive Date: 20180522
  Receipt Date: 20180522
  Transmission Date: 20180711
  Serious: Yes (Hospitalization)
  Sender: FDA-Public Use
  Company Number: DE-ANIPHARMA-2018-DE-000086

PATIENT
  Age: 72 Year
  Sex: Female

DRUGS (24)
  1. HUMALOG MIX [Concomitant]
     Active Substance: INSULIN LISPRO
     Dosage: 25/75 IU
     Route: 058
  2. PREDNISOLON [Concomitant]
     Active Substance: PREDNISOLONE
     Dosage: 10MG
     Route: 048
  3. PANTOZOL [Concomitant]
     Active Substance: PANTOPRAZOLE SODIUM
     Dosage: 20MG, 1-0-1-0
     Route: 048
  4. BRONCHICUM TROPFEN N [Concomitant]
     Dosage: 0.4/0.2G, 1-1-1-0, DROPS
     Route: 048
  5. CANDESARTAN CILEXETIL. [Suspect]
     Active Substance: CANDESARTAN CILEXETIL
     Dosage: 16MG, 1-0-0-0
     Route: 048
  6. VOMEX A [Concomitant]
     Active Substance: DIMENHYDRINATE
     Dosage: AS REQUIRED
     Route: 048
  7. FOLSAN [Concomitant]
     Active Substance: FOLIC ACID
     Dosage: 5MG, 1-0-0-0
     Route: 048
  8. SIMVASTATIN. [Concomitant]
     Active Substance: SIMVASTATIN
     Dosage: 20MG, 0-0-1-0
     Route: 048
  9. IBEROGAST [Concomitant]
     Active Substance: HERBALS
     Route: 048
  10. TORASEMIDE [Concomitant]
     Active Substance: TORSEMIDE
     Dosage: 50MG, 1-0-0-0
     Route: 048
  11. LYRICA [Concomitant]
     Active Substance: PREGABALIN
     Dosage: 25MG, 2-0-2-0
     Route: 048
  12. ECURAL [Concomitant]
     Active Substance: MOMETASONE
     Dosage: 1-0-1-0
     Route: 065
  13. ROCALTROL [Concomitant]
     Active Substance: CALCITRIOL
     Dosage: 0.25MCG, 1-0-0-0
     Route: 048
  14. MAGNETRANS FORTE [Concomitant]
     Active Substance: MAGNESIUM OXIDE
     Dosage: 150MG
     Route: 048
  15. ACTRAPHANE HM [Concomitant]
     Active Substance: INSULIN HUMAN
     Dosage: 30/70 IU
     Route: 065
  16. L-THYROXIN [Concomitant]
     Active Substance: LEVOTHYROXINE SODIUM
     Dosage: 50MCG, 1-0-0-0
     Route: 048
  17. PERENTEROL [Concomitant]
     Active Substance: SACCHAROMYCES CEREVISIAE
     Dosage: 250MG AS REQUIRED
     Route: 048
  18. NOVALGIN (METAMIZOLE SODIUM) [Concomitant]
     Active Substance: METAMIZOLE SODIUM
     Dosage: 500MG, 1-1-1-1
     Route: 048
  19. ELIQUIS [Concomitant]
     Active Substance: APIXABAN
     Dosage: 2.5MG, 1-0-1-0
     Route: 048
  20. AMLODIPIN [Concomitant]
     Active Substance: AMLODIPINE BESYLATE
     Dosage: 5MG, 1-0-1-0
     Route: 048
  21. FENTANYL. [Concomitant]
     Active Substance: FENTANYL
     Dosage: 50MCG
     Route: 050
  22. FLAMMAZINE [Concomitant]
     Active Substance: SILVER SULFADIAZINE
     Route: 065
  23. DEKRISTOL [Concomitant]
     Active Substance: CHOLECALCIFEROL
     Dosage: 20000IU WEEK
     Route: 048
  24. NEBIVOLOL. [Concomitant]
     Active Substance: NEBIVOLOL
     Dosage: 5MG, 0-0-1-0
     Route: 048

REACTIONS (4)
  - Dyspnoea [Unknown]
  - Weight increased [Unknown]
  - Abnormal weight gain [Unknown]
  - Drug prescribing error [Unknown]
